FAERS Safety Report 20650646 (Version 3)
Quarter: 2022Q4

REPORT INFORMATION
  Report Type: Spontaneous
  Country: US (occurrence: US)
  Receive Date: 20220329
  Receipt Date: 20221129
  Transmission Date: 20230112
  Serious: No
  Sender: FDA-Public Use
  Company Number: US-SA-SAC20220328001055

PATIENT
  Age: 66 Year
  Sex: Female

DRUGS (1)
  1. DUPIXENT [Suspect]
     Active Substance: DUPILUMAB
     Indication: Dermatitis atopic
     Dosage: 300 MG, QOW
     Route: 058
     Dates: start: 202102

REACTIONS (8)
  - Nodule [Not Recovered/Not Resolved]
  - Diplopia [Unknown]
  - Skin fissures [Unknown]
  - Dry skin [Unknown]
  - Skin swelling [Unknown]
  - Skin hypertrophy [Unknown]
  - Eyelids pruritus [Not Recovered/Not Resolved]
  - Erythema [Unknown]
